FAERS Safety Report 23471856 (Version 1)
Quarter: 2024Q1

REPORT INFORMATION
  Report Type: Spontaneous
  Country: CN (occurrence: CN)
  Receive Date: 20240202
  Receipt Date: 20240202
  Transmission Date: 20240409
  Serious: Yes (Hospitalization)
  Sender: FDA-Public Use
  Company Number: CN-BoehringerIngelheim-2024-BI-006016

PATIENT
  Age: 68 Year
  Sex: Female

DRUGS (1)
  1. DABIGATRAN ETEXILATE [Suspect]
     Active Substance: DABIGATRAN ETEXILATE
     Indication: Atrial fibrillation

REACTIONS (5)
  - Haematuria [Recovering/Resolving]
  - Ureterolithiasis [Unknown]
  - Chest discomfort [Unknown]
  - Palpitations [Unknown]
  - Gait disturbance [Unknown]
